FAERS Safety Report 9700743 (Version 1)
Quarter: 2013Q4

REPORT INFORMATION
  Report Type: Spontaneous
  Country: US (occurrence: US)
  Receive Date: 20131121
  Receipt Date: 20131121
  Transmission Date: 20140711
  Serious: No
  Sender: FDA-Public Use
  Company Number: US-PFIZER INC-2013331813

PATIENT
  Age: 76 Year
  Sex: Female
  Weight: 77.1 kg

DRUGS (7)
  1. GABAPENTIN [Suspect]
     Indication: NEURALGIA
     Dosage: 300 MG, UNK
  2. GABAPENTIN [Suspect]
     Dosage: 200 MG, 1X/DAY
     Route: 048
     Dates: start: 200910
  3. ACETAMINOPHEN [Concomitant]
     Dosage: UNK, 2X/DAY
  4. RANITIDINE [Concomitant]
     Dosage: 150 MG, HALF IN MORNING AND HALF AT NIGHT
  5. NABUMETONE [Concomitant]
     Dosage: 500 MG, 2X/DAY
  6. METHOCARBAMOL [Concomitant]
     Dosage: 750 MG, 1X/DAY (OCASSIONALLY)
  7. CALCIUM [Concomitant]
     Indication: SUPPLEMENTATION THERAPY
     Dosage: UNK, DAILY

REACTIONS (6)
  - Off label use [Unknown]
  - Myalgia [Unknown]
  - Tension [Unknown]
  - Fatigue [Unknown]
  - Asthenia [Unknown]
  - Drug intolerance [Unknown]
